FAERS Safety Report 9337490 (Version 1)
Quarter: 2013Q2

REPORT INFORMATION
  Report Type: Spontaneous
  Country: IT (occurrence: IT)
  Receive Date: 20130607
  Receipt Date: 20130607
  Transmission Date: 20140414
  Serious: Yes (Other)
  Sender: FDA-Public Use
  Company Number: IT-VERTEX PHARMACEUTICALS INC-2013-006857

PATIENT
  Age: 36 Year
  Sex: Female

DRUGS (5)
  1. INCIVO [Suspect]
     Indication: HEPATITIS C
     Dosage: 2250 MG, QD
     Route: 048
     Dates: start: 20130513, end: 20130523
  2. PEGYLATED INTERFERON ALFA-2B [Concomitant]
     Dosage: DOSAGE FORM: UNKNOWN
     Route: 065
  3. RIBAVIRIN [Concomitant]
     Dosage: DOSAGE FORM: UNKNOWN
     Route: 065
  4. COAPROVEL [Concomitant]
  5. EUTIROX [Concomitant]

REACTIONS (2)
  - Erythema [Recovered/Resolved]
  - Insomnia [Recovered/Resolved]
